FAERS Safety Report 4870134-6 (Version None)
Quarter: 2005Q4

REPORT INFORMATION
  Report Type: 
  Country: None (occurrence: None)
  Receive Date: 20051227
  Receipt Date: 20051214
  Transmission Date: 20060501
  Serious: Yes (Disabling)
  Sender: FDA-Public Use
  Company Number: 2005-135841-NL

PATIENT
  Age: 35 Year
  Sex: Female

DRUGS (7)
  1. MENOTROPINS [Suspect]
     Dosage: DF
  2. CHORIONIC GONADOTROPIN [Suspect]
     Indication: IN VITRO FERTILISATION
     Dosage: DF
  3. PROGESTERONE [Suspect]
     Indication: IN VITRO FERTILISATION
     Dosage: DF
  4. CHORIONIC GONADOTROPIN [Suspect]
     Indication: IN VITRO FERTILISATION
  5. TRIPTORELIN ACETATE [Suspect]
     Indication: IN VITRO FERTILISATION
     Dosage: DF
  6. UROFOLLITROPIN [Suspect]
     Indication: IN VITRO FERTILISATION
     Dosage: DF
  7. MENOTROPINS [Suspect]
     Indication: IN VITRO FERTILISATION
     Dosage: DF

REACTIONS (6)
  - ABORTION SPONTANEOUS [None]
  - CAESAREAN SECTION [None]
  - FIBROMYALGIA [None]
  - OSTEOARTHRITIS [None]
  - PELVIC PAIN [None]
  - SPINAL FRACTURE [None]
